FAERS Safety Report 14069339 (Version 9)
Quarter: 2021Q4

REPORT INFORMATION
  Report Type: Spontaneous
  Country: US (occurrence: US)
  Receive Date: 20171010
  Receipt Date: 20211115
  Transmission Date: 20220303
  Serious: Yes (Other)
  Sender: FDA-Public Use
  Company Number: US-PFIZER INC-2017430682

PATIENT
  Age: 60 Year
  Sex: Male
  Weight: 113.38 kg

DRUGS (6)
  1. GENOTROPIN [Suspect]
     Active Substance: SOMATROPIN
     Indication: Fatigue
     Dosage: 0.4 MG, 1X/DAY
     Route: 030
     Dates: start: 201611, end: 201703
  2. GENOTROPIN [Suspect]
     Active Substance: SOMATROPIN
     Indication: Disturbance in attention
     Dosage: 0.4 MG, 1X/DAY
     Dates: start: 20170926
  3. GENOTROPIN [Suspect]
     Active Substance: SOMATROPIN
     Indication: Haematoma
     Dosage: UNK
  4. GENOTROPIN [Suspect]
     Active Substance: SOMATROPIN
     Dosage: 0.6 MG, DAILY
     Dates: start: 201710
  5. GENOTROPIN [Suspect]
     Active Substance: SOMATROPIN
     Dosage: 0.6 MG, 1X/DAY
     Dates: start: 2017
  6. GENOTROPIN [Suspect]
     Active Substance: SOMATROPIN
     Dosage: 0.6 MG, 1X/DAY
     Dates: start: 2017

REACTIONS (6)
  - Prostate cancer [Unknown]
  - Off label use [Unknown]
  - Product dose omission issue [Not Recovered/Not Resolved]
  - Product use issue [Unknown]
  - Poor quality device used [Unknown]
  - Wrong technique in device usage process [Unknown]

NARRATIVE: CASE EVENT DATE: 20161101
